FAERS Safety Report 9256008 (Version 3)
Quarter: 2013Q2

REPORT INFORMATION
  Report Type: Spontaneous
  Country: US (occurrence: US)
  Receive Date: 20130425
  Receipt Date: 20130515
  Transmission Date: 20140414
  Serious: Yes (Death, Hospitalization)
  Sender: FDA-Public Use
  Company Number: US-GILEAD-2013-0074174

PATIENT
  Sex: Female

DRUGS (3)
  1. LETAIRIS [Suspect]
     Indication: PULMONARY ARTERIAL HYPERTENSION
     Dosage: 10 MG, QD
     Route: 048
     Dates: start: 20101126
  2. LETAIRIS [Suspect]
     Indication: CONNECTIVE TISSUE DISORDER
  3. LETAIRIS [Suspect]
     Indication: SYSTEMIC SCLEROSIS

REACTIONS (2)
  - Right ventricular failure [Fatal]
  - Fluid overload [Unknown]
